FAERS Safety Report 4942695-X (Version None)
Quarter: 2006Q1

REPORT INFORMATION
  Report Type: 
  Country: None (occurrence: None)
  Receive Date: 20060309
  Receipt Date: 20060227
  Transmission Date: 20060701
  Serious: Yes (Life-Threatening, Hospitalization, Disabling)
  Sender: FDA-Public Use
  Company Number: GXKR2006GB01236

PATIENT
  Age: 55 Year
  Sex: Male

DRUGS (6)
  1. PROPRANOLOL [Suspect]
     Dosage: 160 G SR OM + 80  MG, ON, ORAL
     Route: 048
     Dates: end: 20060207
  2. DIGOXIN [Suspect]
     Dosage: 250 UG, QD, ORAL
     Route: 048
     Dates: end: 20060207
  3. FUROSEMIDE [Concomitant]
  4. SPIRONOLACTONE [Concomitant]
  5. VITAMIN B-COMPLEX (NO INGREDIDENTS/SUBSTANCES) [Concomitant]
  6. PERINDOPRIL (PERINDOPRIL) [Concomitant]

REACTIONS (3)
  - BRADYCARDIA [None]
  - PERIPHERAL ISCHAEMIA [None]
  - THROMBOSIS [None]
